FAERS Safety Report 9026659 (Version 2)
Quarter: 2013Q2

REPORT INFORMATION
  Report Type: Spontaneous
  Country: US (occurrence: US)
  Receive Date: 20130123
  Receipt Date: 20130423
  Transmission Date: 20140414
  Serious: Yes (Death, Other)
  Sender: FDA-Public Use
  Company Number: US-ELI_LILLY_AND_COMPANY-US201301004634

PATIENT
  Age: 55 Year
  Sex: Male
  Weight: 82.18 kg

DRUGS (14)
  1. ZYPREXA RELPREVV [Suspect]
     Indication: SCHIZOPHRENIA
     Dosage: 405 MG, 2/M
     Route: 030
     Dates: start: 201105
  2. ZYPREXA [Suspect]
     Dosage: 10 MG, EACH EVENING
     Route: 048
  3. KLONOPIN [Concomitant]
     Dosage: 2 MG, TID
     Route: 048
  4. GLIPIZIDE [Concomitant]
     Dosage: 5 MG, TID
     Route: 048
  5. METFORMIN [Concomitant]
     Dosage: 500 MG, BID
     Route: 048
  6. JANUVIA [Concomitant]
     Dosage: 100 MG, QD
     Route: 048
  7. PEPCID [Concomitant]
     Dosage: 20 MG, EACH EVENING
     Route: 048
  8. LISINOPRIL [Concomitant]
     Dosage: 5 MG, QD
     Route: 048
  9. ADVAIR [Concomitant]
     Dosage: 1 DF, BID
     Route: 048
  10. SPIRIVA [Concomitant]
     Dosage: 18 UG, QD
     Route: 048
  11. PREDNISONE [Concomitant]
     Dosage: 10 MG, QD
  12. VITAMIN D3 [Concomitant]
     Dosage: 2000 U, QD
     Route: 048
  13. ALENDRONATE [Concomitant]
     Dosage: 70 MG, WEEKLY (1/W)
     Route: 048
  14. VITAMIN B6 [Concomitant]
     Dosage: 100 MG, BID
     Route: 048

REACTIONS (3)
  - Cardiac arrest [Fatal]
  - Pneumonia [Unknown]
  - Prescribed overdose [Unknown]
